FAERS Safety Report 4700115-4 (Version None)
Quarter: 2005Q2

REPORT INFORMATION
  Report Type: 
  Country: None (occurrence: None)
  Receive Date: 20050627
  Receipt Date: 20050617
  Transmission Date: 20051028
  Serious: Yes (Death, Hospitalization)
  Sender: FDA-Public Use
  Company Number: US-KINGPHARMUSA00001-K200500849

PATIENT
  Age: 38 Year
  Sex: Female

DRUGS (6)
  1. ALTACE [Suspect]
     Indication: ESSENTIAL HYPERTENSION
     Dosage: 2.5 MG, QD
     Route: 048
     Dates: start: 20030101, end: 20030917
  2. LASIX [Suspect]
     Dosage: 80 MG, QD
     Route: 048
     Dates: start: 20030101, end: 20030917
  3. ESTULIC [Suspect]
     Indication: ESSENTIAL HYPERTENSION
     Dosage: 1 MG, QD
     Route: 048
     Dates: start: 20030601, end: 20030917
  4. UN-ALFA [Suspect]
     Dosage: 1 MG, QD
     Dates: start: 20030601, end: 20030917
  5. EPREX [Suspect]
     Dosage: 3 KU, QD
     Route: 042
     Dates: start: 20030601, end: 20030917
  6. VANCOMYCIN HYDROCHLORIDE [Suspect]
     Dosage: 500 MG, QD
     Route: 042
     Dates: start: 20030902, end: 20030910

REACTIONS (10)
  - CONJUNCTIVITIS [None]
  - DEATH [None]
  - DERMATITIS BULLOUS [None]
  - ERYTHEMA [None]
  - EYELID OEDEMA [None]
  - GENITAL LESION [None]
  - ORAL SOFT TISSUE DISORDER [None]
  - PYREXIA [None]
  - STEVENS-JOHNSON SYNDROME [None]
  - SWELLING FACE [None]
